FAERS Safety Report 6912387-6 (Version None)
Quarter: 2010Q3

REPORT INFORMATION
  Report Type: 
  Country: None (occurrence: None)
  Receive Date: 20100806
  Receipt Date: 20080330
  Transmission Date: 20110219
  Serious: No
  Sender: FDA-Public Use
  Company Number: US-PFIZER INC-2008029178

PATIENT
  Sex: Female
  Weight: 50.909 kg

DRUGS (3)
  1. DETROL LA [Suspect]
     Indication: MICTURITION URGENCY
     Dates: start: 20080327, end: 20080329
  2. DETROL LA [Suspect]
     Indication: INCONTINENCE
  3. ALL OTHER THERAPEUTIC PRODUCTS [Concomitant]
     Indication: HYPOTHYROIDISM

REACTIONS (3)
  - ABDOMINAL PAIN UPPER [None]
  - PAIN IN EXTREMITY [None]
  - RASH [None]
